FAERS Safety Report 17203593 (Version 2)
Quarter: 2020Q1

REPORT INFORMATION
  Report Type: Spontaneous
  Country: JP (occurrence: JP)
  Receive Date: 20191226
  Receipt Date: 20200130
  Transmission Date: 20200409
  Serious: Yes (Other)
  Sender: FDA-Public Use
  Company Number: JP-UNITED THERAPEUTICS-UNT-2019-020857

PATIENT

DRUGS (6)
  1. MIRIMOSTIM [Suspect]
     Active Substance: MIRIMOSTIM
     Indication: NEUROBLASTOMA
     Dosage: 6.0?10^6 U/M2 OVER 2 HOURS AS LEVEL 1
     Route: 042
  2. TECELEUKIN [Suspect]
     Active Substance: TECELEUKIN
     Dosage: 1*10^6 IU/M2 (LEVEL 0) AT WEEK 2
     Route: 042
  3. UNITUXIN [Suspect]
     Active Substance: DINUTUXIMAB
     Indication: NEUROBLASTOMA
     Dosage: 17.5 MG/M2, OVER 10 HOURS
     Route: 041
  4. HYDROXYZINE [Concomitant]
     Active Substance: HYDROXYZINE HYDROCHLORIDE
     Indication: PREMEDICATION
     Dosage: UNK
     Route: 065
  5. TECELEUKIN [Suspect]
     Active Substance: TECELEUKIN
     Indication: NEUROBLASTOMA
     Dosage: 0.75*10^6 IU/M2 (LEVEL 0) AT WEEK 1
     Route: 042
  6. ACETAMINOPHEN. [Concomitant]
     Active Substance: ACETAMINOPHEN
     Indication: PREMEDICATION
     Dosage: UNK
     Route: 065

REACTIONS (1)
  - Neuroblastoma [Unknown]
